FAERS Safety Report 9013661 (Version 1)
Quarter: 2013Q1

REPORT INFORMATION
  Report Type: Spontaneous
  Country: US (occurrence: None)
  Receive Date: 20130109
  Receipt Date: 20130109
  Transmission Date: 20140127
  Serious: Yes (Hospitalization)
  Sender: FDA-Public Use
  Company Number: None

PATIENT
  Age: 68 Year
  Sex: Male
  Weight: 66.5 kg

DRUGS (2)
  1. CEFTRIAXONE [Suspect]
     Indication: UPPER RESPIRATORY TRACT INFECTION
     Dates: start: 20130301, end: 20130103
  2. METHYLPREDNISOLONE [Suspect]
     Indication: UPPER RESPIRATORY TRACT INFECTION
     Dates: start: 20130103, end: 20130103

REACTIONS (6)
  - Pallor [None]
  - Hyperhidrosis [None]
  - Asthenia [None]
  - Blood pressure decreased [None]
  - Syncope [None]
  - Bradycardia [None]
